FAERS Safety Report 9241852 (Version 1)
Quarter: 2013Q2

REPORT INFORMATION
  Report Type: Spontaneous
  Country: PE (occurrence: PE)
  Receive Date: 20130419
  Receipt Date: 20130419
  Transmission Date: 20140414
  Serious: Yes (Other)
  Sender: FDA-Public Use
  Company Number: PE-PFIZER INC-2013113205

PATIENT
  Age: 53 Year
  Sex: Female

DRUGS (2)
  1. LYRICA [Suspect]
     Indication: NEURALGIA
     Dosage: 75 MG, 2X/DAY
     Route: 048
     Dates: start: 201301
  2. LYRICA [Suspect]
     Dosage: 75 MG, 4X/DAY
     Route: 048
     Dates: end: 201303

REACTIONS (2)
  - Cyst [Recovered/Resolved]
  - Drug ineffective [Recovered/Resolved]
